FAERS Safety Report 23462966 (Version 1)
Quarter: 2024Q1

REPORT INFORMATION
  Report Type: Spontaneous
  Country: US (occurrence: US)
  Receive Date: 20240131
  Receipt Date: 20240131
  Transmission Date: 20240409
  Serious: No
  Sender: FDA-Public Use
  Company Number: US-PFIZER INC-202400029419

PATIENT
  Age: 69 Year
  Sex: Female

DRUGS (3)
  1. BOSULIF [Suspect]
     Active Substance: BOSUTINIB MONOHYDRATE
     Dosage: 400 MG, DAILY
  2. BOSULIF [Suspect]
     Active Substance: BOSUTINIB MONOHYDRATE
     Dosage: 100MG ORAL. TAKE 2 TABLETS DAILY
     Route: 048
     Dates: start: 2022
  3. SPRYCEL [Suspect]
     Active Substance: DASATINIB
     Dosage: 20MG ORAL. TAKE 2 TABLETS DAILY
     Route: 048
     Dates: start: 20190212

REACTIONS (2)
  - Diarrhoea [Recovered/Resolved]
  - Fluid retention [Recovered/Resolved]
